FAERS Safety Report 6431611-X (Version None)
Quarter: 2009Q4

REPORT INFORMATION
  Report Type: 
  Country: None (occurrence: None)
  Receive Date: 20091106
  Receipt Date: 20091027
  Transmission Date: 20100525
  Serious: Yes (Hospitalization)
  Sender: FDA-Public Use
  Company Number: US-ELI_LILLY_AND_COMPANY-US200910007264

PATIENT
  Sex: Male

DRUGS (8)
  1. ZYPREXA [Suspect]
     Indication: AGITATION
     Dosage: 10 MG, UNK
     Dates: start: 20090925, end: 20091001
  2. ZYPREXA [Suspect]
     Dosage: 5 MG, DAILY (1/D)
     Dates: start: 20091002, end: 20091004
  3. ZYPREXA [Suspect]
     Route: 030
     Dates: start: 20090925
  4. ZOLOFT [Concomitant]
     Dosage: 25 MG, DAILY (1/D)
  5. ARICEPT [Concomitant]
     Dosage: 5 MG, DAILY (1/D)
  6. WARFARIN SODIUM [Concomitant]
     Dosage: 5 MG, UNK
  7. CRESTOR [Concomitant]
     Dosage: 20 MG, DAILY (1/D)
  8. ROPINIROLE [Concomitant]

REACTIONS (14)
  - ABDOMINAL PAIN UPPER [None]
  - ANHEDONIA [None]
  - DYSARTHRIA [None]
  - DYSSTASIA [None]
  - FUNGAL INFECTION [None]
  - GOUT [None]
  - HYPOTENSION [None]
  - INCONTINENCE [None]
  - INCREASED APPETITE [None]
  - OEDEMA PERIPHERAL [None]
  - OFF LABEL USE [None]
  - POLYDIPSIA [None]
  - POLYURIA [None]
  - SOMNOLENCE [None]
